FAERS Safety Report 4800135-5 (Version None)
Quarter: 2005Q4

REPORT INFORMATION
  Report Type: 
  Country: None (occurrence: None)
  Receive Date: 20051017
  Receipt Date: 20051010
  Transmission Date: 20060501
  Serious: Yes (Other)
  Sender: FDA-Public Use
  Company Number: GB-JNJFOC20050906041

PATIENT

DRUGS (4)
  1. LAMOTRIGINE [Suspect]
  2. TOPAMAX [Suspect]
  3. CLOBAZAM [Suspect]
  4. VALPROATE SODIUM [Suspect]

REACTIONS (1)
  - HYPOSPADIAS [None]
